FAERS Safety Report 8654150 (Version 3)
Quarter: 2015Q3

REPORT INFORMATION
  Report Type: Report from Study
  Country: CN (occurrence: CN)
  Receive Date: 20120709
  Receipt Date: 20150909
  Transmission Date: 20151125
  Serious: Yes (Death, Life-Threatening, Hospitalization, Disabling, Other)
  Sender: FDA-Public Use
  Company Number: CN-BRISTOL-MYERS SQUIBB COMPANY-16721987

PATIENT
  Age: 66 Year
  Sex: Male
  Weight: 55 kg

DRUGS (5)
  1. CETUXIMAB [Suspect]
     Active Substance: CETUXIMAB
     Indication: COLORECTAL CANCER METASTATIC
     Dosage: 4MG: 25JUN2012
     Route: 042
     Dates: start: 20120511, end: 20120625
  2. SODIUM CHLORIDE. [Concomitant]
     Active Substance: SODIUM CHLORIDE
     Indication: HYPONATRAEMIA
     Dosage: 10 PERCENT
     Route: 042
     Dates: start: 20120615, end: 20120618
  3. OXALIPLATIN. [Suspect]
     Active Substance: OXALIPLATIN
     Indication: COLORECTAL CANCER METASTATIC
     Dosage: RECENT DOSE 16JUN2012-148.7MG
     Route: 042
     Dates: start: 20120512, end: 20120616
  4. FOLINIC ACID [Suspect]
     Active Substance: LEUCOVORIN
     Indication: COLORECTAL CANCER METASTATIC
     Dosage: 12MAY2012-332MG  16-17JUN2012-350MG
     Route: 042
     Dates: start: 20120512, end: 20120617
  5. FLUOROURACIL. [Suspect]
     Active Substance: FLUOROURACIL
     Indication: COLORECTAL CANCER METASTATIC
     Dosage: 12MAY2012(BOLUS)664MG  13MAY2012(OVER 48 H)1992MG  16-17JUN2012(BOLUS)700MG  16-18JUN2012 2100MG
     Route: 042
     Dates: start: 20120512, end: 20120618

REACTIONS (1)
  - Septic shock [Fatal]

NARRATIVE: CASE EVENT DATE: 20120626
